FAERS Safety Report 17524615 (Version 4)
Quarter: 2020Q2

REPORT INFORMATION
  Report Type: Report from Study
  Country: CA (occurrence: CA)
  Receive Date: 20200311
  Receipt Date: 20200410
  Transmission Date: 20200713
  Serious: Yes (Other)
  Sender: FDA-Public Use
  Company Number: CA-GLAXOSMITHKLINE-CA2020038200

PATIENT
  Age: 55 Year
  Sex: Female

DRUGS (7)
  1. CIMETIDINE [Concomitant]
     Active Substance: CIMETIDINE
     Dosage: UNK, PRN (UNIT: MG)
     Route: 065
  2. SYNTHROID [Concomitant]
     Active Substance: LEVOTHYROXINE SODIUM
     Indication: PRODUCT USED FOR UNKNOWN INDICATION
     Dosage: UNK UNK, QD
     Route: 065
  3. DICLOFENAC [Suspect]
     Active Substance: DICLOFENAC
     Indication: MUCKLE-WELLS SYNDROME
     Dosage: UNK UNK, PRN
     Route: 065
  4. MODAFINIL. [Concomitant]
     Active Substance: MODAFINIL
     Indication: PRODUCT USED FOR UNKNOWN INDICATION
     Dosage: UNK, QD
     Route: 065
  5. COLCHICINE. [Concomitant]
     Active Substance: COLCHICINE
     Indication: PRODUCT USED FOR UNKNOWN INDICATION
     Dosage: UNK UNK, BID
     Route: 065
  6. CIMETIDINE [Concomitant]
     Active Substance: CIMETIDINE
     Indication: PRODUCT USED FOR UNKNOWN INDICATION
     Dosage: UNK, PRN (UNIT: MG)
     Route: 065
  7. ATORVASTATIN [Concomitant]
     Active Substance: ATORVASTATIN
     Indication: PRODUCT USED FOR UNKNOWN INDICATION
     Dosage: UNK UNK, QD
     Route: 065

REACTIONS (19)
  - Product use in unapproved indication [Unknown]
  - Arthralgia [Unknown]
  - Joint swelling [Unknown]
  - Skin disorder [Unknown]
  - Musculoskeletal stiffness [Unknown]
  - Deafness [Unknown]
  - C-reactive protein increased [Unknown]
  - Pyrexia [Not Recovered/Not Resolved]
  - Myalgia [Unknown]
  - Gait disturbance [Unknown]
  - Fatigue [Unknown]
  - Conjunctivitis [Unknown]
  - Skin irritation [Unknown]
  - Joint stiffness [Unknown]
  - Malaise [Unknown]
  - Ear congestion [Unknown]
  - Deafness neurosensory [Unknown]
  - Eye irritation [Unknown]
  - Serum amyloid A protein increased [Unknown]

NARRATIVE: CASE EVENT DATE: 20200225
